FAERS Safety Report 4271626-3 (Version None)
Quarter: 2004Q1

REPORT INFORMATION
  Report Type: 
  Country: None (occurrence: None)
  Receive Date: 20040113
  Receipt Date: 20040112
  Transmission Date: 20041129
  Serious: No
  Sender: FDA-Public Use
  Company Number: 7103

PATIENT
  Sex: Female

DRUGS (1)
  1. DOXYCYCLINE HYDROCHLORIDE [Suspect]
     Dosage: 100 MG
     Route: 048
     Dates: end: 20040105

REACTIONS (4)
  - FEELING ABNORMAL [None]
  - HAEMATOCHEZIA [None]
  - LOOSE STOOLS [None]
  - VOMITING [None]
